FAERS Safety Report 6100164-8 (Version None)
Quarter: 2009Q1

REPORT INFORMATION
  Report Type: 
  Country: None (occurrence: None)
  Receive Date: 20090226
  Receipt Date: 20090213
  Transmission Date: 20090719
  Serious: Yes (Hospitalization)
  Sender: FDA-Public Use
  Company Number: 1000004845

PATIENT
  Age: 74 Year
  Sex: Female

DRUGS (14)
  1. ESCITALOPRAM [Suspect]
     Dosage: 20 MG (20 MG, 1 IN 1 D), ORAL
     Route: 048
  2. FUROSEMIDE [Suspect]
     Dosage: 40 MG (40 MG, 1 IN 1 D), ORAL
     Route: 048
     Dates: end: 20081118
  3. SPIRONOLACTONE [Suspect]
     Dosage: 50 MG (50 MG, 1 IN 1 D), ORAL
     Route: 048
     Dates: end: 20081118
  4. LEXOMIL [Suspect]
     Dosage: 1 DOSAGE FORMS (1 DOSAGE FORMS, 1 IN 1 D), ORAL
     Route: 048
  5. LEXOMIL [Suspect]
     Dosage: 0.25 DOSAGE FORMS (0.25 DOSAGE FORMS, 1 IN 1 D), ORAL
     Route: 048
  6. STILNOX [Suspect]
     Dosage: 1 DOSAGE FORMS (1 DOSAGE FORMS, 1 IN 1 D), ORAL
     Route: 048
  7. DISCOTRINE (POULTICE OR PATCH) [Suspect]
     Dosage: 1 DOSAGE FORMS (1 DOSAGE FORMS, 1 IN 1 D), TRANSDERMAL
     Route: 062
  8. MAXIDROL [Concomitant]
  9. LOCOID [Concomitant]
  10. PREVISCAN [Concomitant]
  11. NEXIUM [Concomitant]
  12. TAREG [Concomitant]
  13. SPASFON [Concomitant]
  14. DOLIPRANE [Concomitant]

REACTIONS (6)
  - ATRIAL FIBRILLATION [None]
  - BUNDLE BRANCH BLOCK RIGHT [None]
  - DISORIENTATION [None]
  - FALL [None]
  - HEPATITIS CHOLESTATIC [None]
  - RHABDOMYOLYSIS [None]
